FAERS Safety Report 9372745 (Version 3)
Quarter: 2016Q3

REPORT INFORMATION
  Report Type: Spontaneous
  Country: US (occurrence: US)
  Receive Date: 20130627
  Receipt Date: 20160726
  Transmission Date: 20161109
  Serious: Yes (Other)
  Sender: FDA-Public Use
  Company Number: US-ASTRAZENECA-2013SE47427

PATIENT
  Age: 57 Year
  Sex: Male
  Weight: 83.9 kg

DRUGS (11)
  1. AMOXICILLIN. [Suspect]
     Active Substance: AMOXICILLIN
     Indication: ANTIBIOTIC PROPHYLAXIS
     Dosage: 3 COURSES OF 500 MG THREE TIMES A DAY FOR 10 DAYS
     Route: 065
  2. AMOXICILLIN. [Suspect]
     Active Substance: AMOXICILLIN
     Indication: ANTIBIOTIC PROPHYLAXIS
     Dosage: 2000.0MG AS REQUIRED
     Route: 065
  3. VIAGRA [Concomitant]
     Active Substance: SILDENAFIL CITRATE
     Dosage: 25.0MG AS REQUIRED
  4. BIAXIN [Suspect]
     Active Substance: CLARITHROMYCIN
     Indication: BRONCHITIS
     Dosage: 500 MG TWO TIMES A DAY FOR 5 DAYS
     Route: 065
     Dates: start: 20130225
  5. ASPIRIN. [Concomitant]
     Active Substance: ASPIRIN
     Indication: PROPHYLAXIS
  6. BRILINTA [Suspect]
     Active Substance: TICAGRELOR
     Indication: ACUTE CORONARY SYNDROME
     Route: 048
     Dates: start: 2016
  7. OTHER ANTIBIOTICS [Suspect]
     Active Substance: UNSPECIFIED INGREDIENT
     Indication: BRONCHITIS
     Route: 065
  8. NASOCORT [Concomitant]
     Active Substance: BUDESONIDE
     Indication: MULTIPLE ALLERGIES
     Dosage: 1 -2 SPRAYS, PRN
  9. TENORMIN [Suspect]
     Active Substance: ATENOLOL
     Indication: ARRHYTHMIA
     Dosage: 50 DAILY IN THE AM AND 25 MG IN THE EVENING AS NEEDED
     Route: 048
  10. ZITHROMAX [Suspect]
     Active Substance: AZITHROMYCIN DIHYDRATE
     Indication: BRONCHITIS
     Dosage: NON AZ PRODUCT
     Route: 065
  11. LEVAQUIN [Suspect]
     Active Substance: LEVOFLOXACIN
     Indication: BRONCHITIS
     Route: 065

REACTIONS (15)
  - Blood pressure fluctuation [Unknown]
  - Flatulence [Unknown]
  - Seasonal allergy [Unknown]
  - Dyspnoea [Unknown]
  - Abdominal discomfort [Unknown]
  - Intentional product misuse [Unknown]
  - Arrhythmia [Unknown]
  - Bronchitis [Unknown]
  - Dyspnoea [Unknown]
  - Body height decreased [Unknown]
  - Pyrexia [Recovered/Resolved]
  - Myocardial infarction [Unknown]
  - Escherichia infection [Unknown]
  - Lower respiratory tract infection [Unknown]
  - Abdominal discomfort [Unknown]

NARRATIVE: CASE EVENT DATE: 1999
